FAERS Safety Report 7845010-7 (Version None)
Quarter: 2011Q4

REPORT INFORMATION
  Report Type: 
  Country: None (occurrence: None)
  Receive Date: 20111018
  Receipt Date: 20111006
  Transmission Date: 20120403
  Serious: Yes (Disabling)
  Sender: FDA-Public Use
  Company Number: DSA_47816_2011

PATIENT
  Sex: Male

DRUGS (1)
  1. ATIVAN [Suspect]
     Indication: ANXIETY
     Dosage: 1 MG, UP TO 10 TIMES PER DAY ORAL
     Route: 048
     Dates: start: 20100101, end: 20100101

REACTIONS (11)
  - PARADOXICAL DRUG REACTION [None]
  - PSORIASIS [None]
  - VARICOSE VEIN [None]
  - ANXIETY [None]
  - PAIN [None]
  - VISION BLURRED [None]
  - DIZZINESS [None]
  - CONDITION AGGRAVATED [None]
  - ACTIVITIES OF DAILY LIVING IMPAIRED [None]
  - MALAISE [None]
  - INSOMNIA [None]
